FAERS Safety Report 10394124 (Version 3)
Quarter: 2018Q4

REPORT INFORMATION
  Report Type: Report from Study
  Country: JP (occurrence: JP)
  Receive Date: 20140819
  Receipt Date: 20181121
  Transmission Date: 20190204
  Serious: Yes (Death, Hospitalization, Other)
  Sender: FDA-Public Use
  Company Number: PHHY2008JP045317

PATIENT
  Age: 50 Year
  Sex: Male

DRUGS (12)
  1. EXJADE [Suspect]
     Active Substance: DEFERASIROX
     Dosage: 1000 MG, QD
     Route: 048
     Dates: start: 20081024, end: 20081127
  2. VITAMEDIN INTRAVENOUS [Concomitant]
     Active Substance: CYANOCOBALAMIN\PYRIDOXINE HYDROCHLORIDE\THIAMINE
     Indication: ALCOHOLIC LIVER DISEASE
     Dosage: 3 DF, QD
     Route: 048
     Dates: start: 20081017, end: 20081128
  3. FOLIAMIN [Concomitant]
     Active Substance: FOLIC ACID
     Indication: ALCOHOLIC LIVER DISEASE
     Dosage: 15 MG, QD
     Route: 048
     Dates: start: 20081017, end: 20081128
  4. PROMAC [Concomitant]
     Active Substance: NITROFURANTOIN
     Indication: ALCOHOLIC LIVER DISEASE
     Dosage: 150 MG, QD
     Route: 048
     Dates: start: 20081017, end: 20081128
  5. MAALOX ANTACID [Concomitant]
     Active Substance: ALUMINUM HYDROXIDE\DIMETHICONE\MAGNESIUM HYDROXIDE
     Indication: ALCOHOLIC LIVER DISEASE
     Dosage: 3.6 G, QD
     Route: 048
     Dates: start: 20081017, end: 20081128
  6. ALDACTONE A [Concomitant]
     Active Substance: SPIRONOLACTONE
     Indication: ALCOHOLIC LIVER DISEASE
     Dosage: 15 MG, QD
     Route: 048
     Dates: start: 20081017, end: 20081128
  7. EXJADE [Suspect]
     Active Substance: DEFERASIROX
     Indication: MYELODYSPLASTIC SYNDROME
     Dosage: 500 MG, UNK
     Route: 048
     Dates: start: 20081001
  8. URSO [Concomitant]
     Active Substance: URSODIOL
     Indication: ALCOHOLIC LIVER DISEASE
     Dosage: 600 MG, QD
     Route: 048
     Dates: start: 20081017, end: 20081128
  9. KANAMYCIN [Concomitant]
     Active Substance: KANAMYCIN\KANAMYCIN A SULFATE
     Indication: ALCOHOLIC LIVER DISEASE
     Dosage: 1000 MG, QD
     Route: 048
     Dates: start: 20081017, end: 20081128
  10. EXJADE [Suspect]
     Active Substance: DEFERASIROX
     Indication: IRON OVERLOAD
     Dosage: 500 MG, QD
     Route: 048
     Dates: start: 20081017, end: 20081023
  11. LACTULOSE. [Concomitant]
     Active Substance: LACTULOSE
     Indication: ALCOHOLIC LIVER DISEASE
     Dosage: 60 ML, QD
     Route: 048
     Dates: start: 20081017, end: 20081128
  12. PARIET [Concomitant]
     Active Substance: RABEPRAZOLE SODIUM
     Indication: ALCOHOLIC LIVER DISEASE
     Dosage: 10 MG, QD
     Route: 048
     Dates: start: 20081017, end: 20081128

REACTIONS (10)
  - Sepsis [Fatal]
  - Disease progression [Fatal]
  - Alanine aminotransferase increased [Not Recovered/Not Resolved]
  - Blood urea increased [Not Recovered/Not Resolved]
  - White blood cell count increased [Not Recovered/Not Resolved]
  - Peritonitis bacterial [Fatal]
  - Blood creatinine increased [Not Recovered/Not Resolved]
  - Myelodysplastic syndrome [Fatal]
  - Blood bilirubin increased [Not Recovered/Not Resolved]
  - Aspartate aminotransferase increased [Not Recovered/Not Resolved]

NARRATIVE: CASE EVENT DATE: 20081106
